FAERS Safety Report 7807857-2 (Version None)
Quarter: 2011Q4

REPORT INFORMATION
  Report Type: 
  Country: None (occurrence: None)
  Receive Date: 20111011
  Receipt Date: 20111003
  Transmission Date: 20120403
  Serious: Yes (Hospitalization)
  Sender: FDA-Public Use
  Company Number: US-ASTRAZENECA-2011SE04366

PATIENT
  Age: 59 Year
  Sex: Female
  Weight: 68 kg

DRUGS (23)
  1. SEROQUEL [Suspect]
     Dosage: 100 MG TO 300 MG
     Route: 048
  2. SEROQUEL [Suspect]
     Route: 048
  3. AMBIEN [Concomitant]
     Indication: SLEEP DISORDER
  4. SEROQUEL [Suspect]
     Indication: DEPRESSION
     Route: 048
  5. SEROQUEL [Suspect]
     Dosage: 100 MG TO 300 MG
     Route: 048
  6. SEROQUEL [Suspect]
     Route: 048
  7. WELLBUTRIN [Concomitant]
     Indication: DEPRESSION
  8. KLONOPIN [Concomitant]
     Indication: STRESS
  9. SEROQUEL [Suspect]
     Indication: SLEEP DISORDER
     Route: 048
  10. SEROQUEL [Suspect]
     Dosage: 300 MG DAILY AND 50 MG IF NECESSARY
     Route: 048
  11. SEROQUEL [Suspect]
     Dosage: 300 MG AND 100 MG AT NIGHT
     Route: 048
  12. SEROQUEL [Suspect]
     Dosage: 300 MG AND 100 MG AT NIGHT
     Route: 048
  13. SEROQUEL [Suspect]
     Dosage: 100 MG TO 300 MG
     Route: 048
  14. SEROQUEL [Suspect]
     Route: 048
  15. SEROQUEL [Suspect]
     Route: 048
  16. SEROQUEL [Suspect]
     Indication: ANXIETY
     Route: 048
  17. SEROQUEL [Suspect]
     Dosage: 300 MG AND 100 MG AT NIGHT
     Route: 048
  18. CYMBALTA [Concomitant]
     Indication: DEPRESSION
  19. SEROQUEL [Suspect]
     Dosage: 300 MG DAILY AND 50 MG IF NECESSARY
     Route: 048
  20. SEROQUEL [Suspect]
     Dosage: 300 MG DAILY AND 50 MG IF NECESSARY
     Route: 048
  21. SEROQUEL [Suspect]
     Route: 048
  22. SEROQUEL [Suspect]
     Route: 048
  23. KLONOPIN [Concomitant]
     Indication: ANXIETY

REACTIONS (23)
  - MALAISE [None]
  - DISCOMFORT [None]
  - OFF LABEL USE [None]
  - SPEECH DISORDER [None]
  - LARYNGITIS [None]
  - BACK PAIN [None]
  - INCOHERENT [None]
  - SELF-INJURIOUS IDEATION [None]
  - ACTIVITIES OF DAILY LIVING IMPAIRED [None]
  - FEELING ABNORMAL [None]
  - DIZZINESS [None]
  - ABDOMINAL PAIN UPPER [None]
  - DEPRESSED MOOD [None]
  - ANXIETY [None]
  - ANAEMIA [None]
  - WRONG TECHNIQUE IN DRUG USAGE PROCESS [None]
  - MENTAL DISORDER [None]
  - CONFUSIONAL STATE [None]
  - DRUG DOSE OMISSION [None]
  - PANIC ATTACK [None]
  - NASOPHARYNGITIS [None]
  - PNEUMONIA [None]
  - BACK DISORDER [None]
